FAERS Safety Report 6529744-2 (Version None)
Quarter: 2010Q1

REPORT INFORMATION
  Report Type: 
  Country: None (occurrence: None)
  Receive Date: 20100107
  Receipt Date: 20091228
  Transmission Date: 20100710
  Serious: Yes (Other)
  Sender: FDA-Public Use
  Company Number: JP-BRISTOL-MYERS SQUIBB COMPANY-14913156

PATIENT

DRUGS (2)
  1. CYCLOPHOSPHAMIDE [Suspect]
     Indication: INTERSTITIAL LUNG DISEASE
  2. CORTICOSTEROID [Suspect]
     Indication: INTERSTITIAL LUNG DISEASE
     Dosage: REDUCED TO 4.5MG , 4MG AND THEN 3.5MG.

REACTIONS (2)
  - CYTOMEGALOVIRUS INFECTION [None]
  - PULMONARY CAVITATION [None]
